FAERS Safety Report 14942633 (Version 1)
Quarter: 2018Q2

REPORT INFORMATION
  Report Type: Report from Study
  Country: GB (occurrence: GB)
  Receive Date: 20180528
  Receipt Date: 20180528
  Transmission Date: 20180711
  Serious: Yes (Hospitalization)
  Sender: FDA-Public Use
  Company Number: GB-ROCHE-2128771

PATIENT
  Sex: Female

DRUGS (1)
  1. TOCILIZUMAB. [Suspect]
     Active Substance: TOCILIZUMAB
     Indication: RHEUMATOID ARTHRITIS
     Route: 065
     Dates: start: 20170515, end: 20170528

REACTIONS (3)
  - Perinephric abscess [Unknown]
  - Hydronephrosis [Unknown]
  - Colonic abscess [Unknown]

NARRATIVE: CASE EVENT DATE: 20170528
